FAERS Safety Report 9837910 (Version 1)
Quarter: 2014Q1

REPORT INFORMATION
  Report Type: Spontaneous
  Country: JP (occurrence: JP)
  Receive Date: 20140123
  Receipt Date: 20140123
  Transmission Date: 20141002
  Serious: Yes (Other)
  Sender: FDA-Public Use
  Company Number: JP-PFIZER INC-2014017380

PATIENT
  Age: 3 Year
  Sex: Female
  Weight: 12.6 kg

DRUGS (1)
  1. GENOTROPIN GOQUICK [Suspect]
     Indication: SMALL FOR DATES BABY
     Dosage: 0.5 MG, 1X/DAY
     Dates: start: 20120719, end: 20131127

REACTIONS (2)
  - Sleep apnoea syndrome [Not Recovered/Not Resolved]
  - Adenoidal hypertrophy [Not Recovered/Not Resolved]
